FAERS Safety Report 23664101 (Version 1)
Quarter: 2024Q1

REPORT INFORMATION
  Report Type: Spontaneous
  Country: US (occurrence: US)
  Receive Date: 20240322
  Receipt Date: 20240322
  Transmission Date: 20240410
  Serious: No
  Sender: FDA-Public Use
  Company Number: US-JNJFOC-20240319116

PATIENT
  Sex: Male

DRUGS (1)
  1. TALQUETAMAB [Suspect]
     Active Substance: TALQUETAMAB
     Indication: Product used for unknown indication
     Route: 065

REACTIONS (23)
  - Weight decreased [Unknown]
  - Oropharyngeal pain [Recovered/Resolved with Sequelae]
  - Mastication disorder [Recovered/Resolved with Sequelae]
  - Fatigue [Unknown]
  - Fatigue [Unknown]
  - Asthenia [Unknown]
  - Disturbance in attention [Recovered/Resolved with Sequelae]
  - Aptyalism [Recovered/Resolved with Sequelae]
  - Ageusia [Recovered/Resolved with Sequelae]
  - Dry throat [Recovered/Resolved with Sequelae]
  - Rash [Recovered/Resolved with Sequelae]
  - Nail bed disorder [Recovered/Resolved with Sequelae]
  - Localised infection [Recovered/Resolved with Sequelae]
  - Dysphagia [Recovered/Resolved with Sequelae]
  - Skin exfoliation [Recovered/Resolved with Sequelae]
  - Skin exfoliation [Recovered/Resolved with Sequelae]
  - Pruritus [Recovered/Resolved with Sequelae]
  - Nail disorder [Recovered/Resolved with Sequelae]
  - Dry skin [Recovered/Resolved with Sequelae]
  - Skin fissures [Recovered/Resolved with Sequelae]
  - Pain in extremity [Recovered/Resolved with Sequelae]
  - Ageusia [Recovered/Resolved with Sequelae]
  - Tooth disorder [Not Recovered/Not Resolved]
